FAERS Safety Report 8237551-8 (Version None)
Quarter: 2012Q1

REPORT INFORMATION
  Report Type: 
  Country: None (occurrence: None)
  Receive Date: 20120327
  Receipt Date: 20120315
  Transmission Date: 20120608
  Serious: Yes (Other)
  Sender: FDA-Public Use
  Company Number: US-SANOFI-AVENTIS-2012SA018194

PATIENT
  Age: 89 Year
  Sex: Female

DRUGS (5)
  1. METOPROLOL SUCCINATE [Suspect]
     Route: 048
     Dates: start: 20110101, end: 20120101
  2. METOPROLOL SUCCINATE [Suspect]
     Route: 048
     Dates: start: 20120101
  3. HERBAL EXTRACTS [Concomitant]
  4. MULTAQ [Suspect]
     Indication: ATRIAL FIBRILLATION
     Route: 048
     Dates: start: 20110101
  5. VITAMIN B COMPLEX CAP [Concomitant]

REACTIONS (3)
  - TRANSIENT ISCHAEMIC ATTACK [None]
  - DYSARTHRIA [None]
  - HYPOTENSION [None]
